FAERS Safety Report 5578287-1 (Version None)
Quarter: 2007Q4

REPORT INFORMATION
  Report Type: 
  Country: None (occurrence: None)
  Receive Date: 20071130
  Receipt Date: 20070807
  Transmission Date: 20080405
  Serious: No
  Sender: FDA-Public Use
  Company Number: US200707000831

PATIENT
  Age: 57 Year
  Sex: Male
  Weight: 75.7 kg

DRUGS (7)
  1. BYETTA [Suspect]
     Indication: TYPE 2 DIABETES MELLITUS
     Dosage: 10 UG, 2/D, SUBCUTANEOUS
     Route: 058
     Dates: start: 20061021
  2. STARLIX [Concomitant]
  3. ACTOS [Concomitant]
  4. GLIPIZIDE [Concomitant]
  5. GLUCOPHAGE [Concomitant]
  6. VYTORIN [Concomitant]
  7. MICARDIS [Concomitant]

REACTIONS (8)
  - BLOOD GLUCOSE DECREASED [None]
  - DECREASED APPETITE [None]
  - DISCOMFORT [None]
  - DISORIENTATION [None]
  - INCOHERENT [None]
  - MOBILITY DECREASED [None]
  - SPEECH DISORDER [None]
  - WEIGHT DECREASED [None]
